FAERS Safety Report 14059146 (Version 1)
Quarter: 2017Q4

REPORT INFORMATION
  Report Type: Report from Study
  Country: US (occurrence: US)
  Receive Date: 20171006
  Receipt Date: 20171006
  Transmission Date: 20180321
  Serious: No
  Sender: FDA-Public Use
  Company Number: US-AMGEN-USASL2017026005

PATIENT
  Age: 66 Year
  Sex: Female

DRUGS (1)
  1. PROLIA [Suspect]
     Active Substance: DENOSUMAB
     Indication: PRODUCT USED FOR UNKNOWN INDICATION
     Dosage: 60 MG, Q6MO
     Route: 065

REACTIONS (13)
  - Oropharyngeal pain [Unknown]
  - Cystitis [Unknown]
  - Aphonia [Unknown]
  - Blood pressure inadequately controlled [Not Recovered/Not Resolved]
  - Scoliosis [Not Recovered/Not Resolved]
  - Arthralgia [Unknown]
  - Weight increased [Unknown]
  - Feeling abnormal [Unknown]
  - Joint swelling [Unknown]
  - Bone pain [Not Recovered/Not Resolved]
  - Blood cholesterol increased [Unknown]
  - Laryngitis [Unknown]
  - Hypertension [Unknown]

NARRATIVE: CASE EVENT DATE: 201612
